FAERS Safety Report 22174441 (Version 3)
Quarter: 2023Q2

REPORT INFORMATION
  Report Type: Report from Study
  Country: JP (occurrence: JP)
  Receive Date: 20230405
  Receipt Date: 20230626
  Transmission Date: 20230722
  Serious: Yes (Life-Threatening, Other)
  Sender: FDA-Public Use
  Company Number: JP-TAKEDA-2023TJP004063

PATIENT
  Age: 70 Year
  Sex: Male
  Weight: 43 kg

DRUGS (3)
  1. LEUPROLIDE ACETATE [Suspect]
     Active Substance: LEUPROLIDE ACETATE
     Indication: Bulbospinal muscular atrophy congenital
     Dosage: 11.25 MILLIGRAM, Q3MONTHS
     Route: 058
     Dates: start: 20230228, end: 20230228
  2. INDERAL [Concomitant]
     Active Substance: PROPRANOLOL HYDROCHLORIDE
     Indication: Hypertension
     Dosage: 1 DOSAGE FORM, QD
     Route: 048
     Dates: start: 20230105, end: 20230311
  3. NIFEDIPINE [Concomitant]
     Active Substance: NIFEDIPINE
     Indication: Hypertension
     Dosage: 1 DOSAGE FORM, QD
     Route: 048
     Dates: start: 20230105, end: 20230311

REACTIONS (4)
  - Pneumonia aspiration [Recovered/Resolved with Sequelae]
  - Hypoxic-ischaemic encephalopathy [Not Recovered/Not Resolved]
  - Respiratory failure [Recovered/Resolved]
  - Bulbospinal muscular atrophy congenital [Unknown]

NARRATIVE: CASE EVENT DATE: 20230312
